FAERS Safety Report 22104707 (Version 2)
Quarter: 2023Q1

REPORT INFORMATION
  Report Type: Spontaneous
  Country: US (occurrence: US)
  Receive Date: 20230316
  Receipt Date: 20230320
  Transmission Date: 20230417
  Serious: Yes (Other)
  Sender: FDA-Public Use
  Company Number: US-TEVA-2023-US-2864844

PATIENT
  Sex: Female

DRUGS (2)
  1. SCOPOLAMINE [Suspect]
     Active Substance: SCOPOLAMINE
     Indication: Product used for unknown indication
     Dosage: 1 MG/72HR
     Route: 065
     Dates: start: 20230220, end: 20230225
  2. ZOMIG [Concomitant]
     Active Substance: ZOLMITRIPTAN
     Indication: Migraine
     Route: 065

REACTIONS (11)
  - Drug withdrawal syndrome [Unknown]
  - Balance disorder [Unknown]
  - Motion sickness [Unknown]
  - Dizziness [Unknown]
  - Headache [Unknown]
  - Palpitations [Unknown]
  - Hypertension [Unknown]
  - Mydriasis [Unknown]
  - Photophobia [Unknown]
  - Confusional state [Unknown]
  - Emergency care [Recovered/Resolved]

NARRATIVE: CASE EVENT DATE: 20230101
